FAERS Safety Report 18285685 (Version 6)
Quarter: 2024Q1

REPORT INFORMATION
  Report Type: Report from Study
  Country: CO (occurrence: CO)
  Receive Date: 20200918
  Receipt Date: 20240318
  Transmission Date: 20240410
  Serious: Yes (Other)
  Sender: FDA-Public Use
  Company Number: NVSC2020CO239972

PATIENT
  Age: 10 Year
  Sex: Male
  Weight: 42 kg

DRUGS (7)
  1. ILARIS [Suspect]
     Active Substance: CANAKINUMAB
     Indication: Mevalonate kinase deficiency
     Dosage: 150 MG, QMO
     Route: 058
     Dates: start: 20180128
  2. ILARIS [Suspect]
     Active Substance: CANAKINUMAB
     Dosage: 70 MG, QMO
     Route: 058
     Dates: start: 20200710
  3. ILARIS [Suspect]
     Active Substance: CANAKINUMAB
     Dosage: 70 MG, QMO
     Route: 058
     Dates: start: 20200813
  4. ILARIS [Suspect]
     Active Substance: CANAKINUMAB
     Dosage: UNK
     Route: 065
     Dates: start: 20201013
  5. ILARIS [Suspect]
     Active Substance: CANAKINUMAB
     Dosage: UNK
     Route: 065
     Dates: start: 20201119
  6. ILARIS [Suspect]
     Active Substance: CANAKINUMAB
     Dosage: UNK
     Route: 065
     Dates: start: 20210602
  7. ILARIS [Suspect]
     Active Substance: CANAKINUMAB
     Dosage: 150 MG, QMO
     Route: 058

REACTIONS (3)
  - Hydronephrosis [Unknown]
  - Inappropriate schedule of product administration [Unknown]
  - Off label use [Not Recovered/Not Resolved]

NARRATIVE: CASE EVENT DATE: 20201119
